FAERS Safety Report 15954298 (Version 1)
Quarter: 2019Q1

REPORT INFORMATION
  Report Type: Spontaneous
  Country: IT (occurrence: IT)
  Receive Date: 20190213
  Receipt Date: 20190213
  Transmission Date: 20190417
  Serious: Yes (Hospitalization, Other)
  Sender: FDA-Public Use
  Company Number: IT-AUROBINDO-AUR-APL-2019-007387

PATIENT

DRUGS (1)
  1. OLMESARTAN FILM COATED TABLETS [Suspect]
     Active Substance: OLMESARTAN
     Indication: HYPERTENSION
     Dosage: 20 MILLIGRAM, ONCE A DAY
     Route: 048
     Dates: start: 20170101, end: 20190121

REACTIONS (2)
  - Diarrhoea [Recovering/Resolving]
  - Acute kidney injury [Recovering/Resolving]

NARRATIVE: CASE EVENT DATE: 20190121
